FAERS Safety Report 19770604 (Version 2)
Quarter: 2021Q3

REPORT INFORMATION
  Report Type: Spontaneous
  Country: US (occurrence: US)
  Receive Date: 20210831
  Receipt Date: 20210831
  Transmission Date: 20211014
  Serious: No
  Sender: FDA-Public Use
  Company Number: US-VERTEX PHARMACEUTICALS-2015-005575

PATIENT
  Age: 21 Year
  Sex: Female

DRUGS (3)
  1. ORKAMBI [Suspect]
     Active Substance: IVACAFTOR\LUMACAFTOR
     Dosage: 1 PILL A DAY
     Route: 048
     Dates: start: 201512, end: 201603
  2. ORKAMBI [Suspect]
     Active Substance: IVACAFTOR\LUMACAFTOR
     Dosage: BID (REPORTED AS 800 MG LUMACAFTOR/ 500 MG IVACAFTOR)
     Route: 048
  3. ORKAMBI [Suspect]
     Active Substance: IVACAFTOR\LUMACAFTOR
     Indication: CYSTIC FIBROSIS
     Dosage: BID (REPORTED AS 800 MG LUMACAFTOR/ 500 MG IVACAFTOR)
     Route: 048
     Dates: start: 201506

REACTIONS (9)
  - Fatigue [Unknown]
  - Polymenorrhoea [Unknown]
  - Cough [Recovered/Resolved]
  - Bacterial test positive [Unknown]
  - Product dose omission issue [Unknown]
  - Chest discomfort [Recovered/Resolved]
  - Hypomenorrhoea [Unknown]
  - Hepatic enzyme increased [Recovered/Resolved]
  - Malaise [Unknown]

NARRATIVE: CASE EVENT DATE: 201506
